FAERS Safety Report 6343890-8 (Version None)
Quarter: 2009Q3

REPORT INFORMATION
  Report Type: 
  Country: None (occurrence: None)
  Receive Date: 20090908
  Receipt Date: 20090825
  Transmission Date: 20100115
  Serious: Yes (Other)
  Sender: FDA-Public Use
  Company Number: JP-PFIZER INC-2009253386

PATIENT

DRUGS (1)
  1. AROMASIN [Suspect]

REACTIONS (1)
  - DEAFNESS [None]
